FAERS Safety Report 12770541 (Version 1)
Quarter: 2016Q3

REPORT INFORMATION
  Report Type: Spontaneous
  Country: US (occurrence: US)
  Receive Date: 20160921
  Receipt Date: 20160921
  Transmission Date: 20161109
  Serious: Yes (Other)
  Sender: FDA-Public Use
  Company Number: None

PATIENT
  Age: 30 Year
  Sex: Female
  Weight: 78.3 kg

DRUGS (1)
  1. VENTOLIN [Suspect]
     Active Substance: ALBUTEROL SULFATE
     Indication: ASTHMA
     Route: 055

REACTIONS (9)
  - Paraesthesia [None]
  - Eye disorder [None]
  - Tachyphrenia [None]
  - Eye pain [None]
  - Feeling abnormal [None]
  - Dizziness [None]
  - Suicidal ideation [None]
  - Skin discolouration [None]
  - Unevaluable event [None]

NARRATIVE: CASE EVENT DATE: 20160816
